FAERS Safety Report 6962142-6 (Version None)
Quarter: 2010Q3

REPORT INFORMATION
  Report Type: 
  Country: None (occurrence: None)
  Receive Date: 20100902
  Receipt Date: 20100826
  Transmission Date: 20110219
  Serious: Yes (Hospitalization, Disabling, Other)
  Sender: FDA-Public Use
  Company Number: PHHY2010JP34996

PATIENT
  Sex: Male
  Weight: 57 kg

DRUGS (10)
  1. DIOVAN [Suspect]
     Indication: HYPERTENSION
     Dosage: 80 MG, QD
     Route: 048
     Dates: start: 20070101
  2. DIOVAN [Suspect]
     Dosage: 160MG DAILY
     Route: 048
     Dates: start: 20100519, end: 20100524
  3. PARIET [Concomitant]
     Indication: REFLUX OESOPHAGITIS
     Dosage: 10 MG
     Route: 048
     Dates: start: 20100519
  4. HALCION [Concomitant]
     Dosage: 0.25 MG
     Route: 048
  5. ADALAT CC [Concomitant]
     Indication: HYPERTENSION
     Dosage: 20 MG
     Route: 048
     Dates: start: 20100519
  6. ADALAT CC [Concomitant]
     Dosage: 60MG
  7. PERSANTINE [Concomitant]
     Dosage: 75 MG
     Route: 048
  8. ASPIRIN [Concomitant]
     Indication: ARTERIOSCLEROSIS
     Dosage: 100 MG
     Route: 048
     Dates: start: 20070101
  9. CALCIUM POLYSTYRENE SULFONATE [Concomitant]
     Indication: HYPERKALAEMIA
     Dosage: 75 MG
     Route: 048
     Dates: start: 20100517, end: 20100616
  10. NORVASC [Concomitant]
     Dosage: 5MG DAILY

REACTIONS (7)
  - ARTERIOVENOUS SHUNT OPERATION [None]
  - BLOOD CREATININE INCREASED [None]
  - CAROTID ARTERY OCCLUSION [None]
  - DIALYSIS [None]
  - HYPERTENSION [None]
  - RENAL ARTERY STENOSIS [None]
  - RENAL FAILURE [None]
